FAERS Safety Report 4499222-3 (Version None)
Quarter: 2004Q4

REPORT INFORMATION
  Report Type: 
  Country: None (occurrence: None)
  Receive Date: 20041111
  Receipt Date: 20041102
  Transmission Date: 20050328
  Serious: Yes (Hospitalization)
  Sender: FDA-Public Use
  Company Number: IL-GLAXOSMITHKLINE-B0350713A

PATIENT
  Age: 17 Year
  Sex: Male

DRUGS (1)
  1. LAMOTRIGINE [Suspect]
     Indication: BIPOLAR DISORDER

REACTIONS (3)
  - PYREXIA [None]
  - THROMBOCYTOPENIA [None]
  - TREMOR [None]
